FAERS Safety Report 10581799 (Version 5)
Quarter: 2015Q1

REPORT INFORMATION
  Report Type: Spontaneous
  Country: US (occurrence: US)
  Receive Date: 20141113
  Receipt Date: 20150120
  Transmission Date: 20150720
  Serious: Yes (Hospitalization, Other)
  Sender: FDA-Public Use
  Company Number: US-ACTELION-A-US2014-107781

PATIENT
  Age: 45 Year
  Sex: Female

DRUGS (25)
  1. VELETRI [Suspect]
     Active Substance: EPOPROSTENOL
     Indication: PULMONARY HYPERTENSION
     Dosage: 40 NG/KG, PER MIN
     Route: 042
     Dates: start: 20121112
  2. HEPARIN [Concomitant]
     Active Substance: HEPARIN SODIUM
  3. ZAROXOLYN [Concomitant]
     Active Substance: METOLAZONE
  4. WARFARIN [Concomitant]
     Active Substance: WARFARIN
  5. ACETAMINOPHEN. [Concomitant]
     Active Substance: ACETAMINOPHEN
  6. FOLIC ACID. [Concomitant]
     Active Substance: FOLIC ACID
  7. LORTAB [Concomitant]
     Active Substance: ACETAMINOPHEN\HYDROCODONE BITARTRATE
  8. ADCIRCA [Concomitant]
     Active Substance: TADALAFIL
     Dosage: 40 MG, UNK
  9. NEXIUM [Concomitant]
     Active Substance: ESOMEPRAZOLE MAGNESIUM
  10. FERROUS GLUCONATE [Concomitant]
     Active Substance: FERROUS GLUCONATE
  11. HYDROCORTISONE. [Concomitant]
     Active Substance: HYDROCORTISONE
  12. IMODIUM [Concomitant]
     Active Substance: LOPERAMIDE HYDROCHLORIDE
  13. PHENERGAN [Concomitant]
     Active Substance: PROMETHAZINE HYDROCHLORIDE
  14. LOVENOX [Concomitant]
     Active Substance: ENOXAPARIN SODIUM
  15. GABAPENTIN. [Concomitant]
     Active Substance: GABAPENTIN
  16. BENADRYL [Concomitant]
     Active Substance: DIPHENHYDRAMINE HYDROCHLORIDE
  17. ZOLOFT [Concomitant]
     Active Substance: SERTRALINE HYDROCHLORIDE
  18. ULTRAM [Concomitant]
     Active Substance: TRAMADOL HYDROCHLORIDE
  19. LETAIRIS [Concomitant]
     Active Substance: AMBRISENTAN
     Dosage: 10 MG, UNK
  20. AFRIN [Concomitant]
     Active Substance: OXYMETAZOLINE
  21. OXYGEN. [Concomitant]
     Active Substance: OXYGEN
  22. KEPPRA [Concomitant]
     Active Substance: LEVETIRACETAM
  23. KAY CIEL [Concomitant]
     Active Substance: POTASSIUM CHLORIDE
  24. COLACE [Concomitant]
     Active Substance: DOCUSATE SODIUM
  25. THROMBIN [Concomitant]
     Active Substance: THROMBIN

REACTIONS (23)
  - Respiratory failure [Recovered/Resolved]
  - Adrenal insufficiency [Unknown]
  - Asthenia [Unknown]
  - Catheter placement [Recovered/Resolved]
  - Pulmonary embolism [Unknown]
  - Hepatic ischaemia [Unknown]
  - Seizure [Unknown]
  - Acute respiratory distress syndrome [Unknown]
  - Septic shock [Recovered/Resolved]
  - Haemolytic anaemia [Unknown]
  - Right ventricular failure [Unknown]
  - Acute kidney injury [Unknown]
  - Organ failure [Unknown]
  - Pneumonia [Unknown]
  - Device related sepsis [Unknown]
  - Oliguria [Unknown]
  - Liver function test abnormal [Unknown]
  - Dialysis [Unknown]
  - Rectal haemorrhage [Unknown]
  - Upper respiratory tract infection [Unknown]
  - Pulmonary hypertension [Unknown]
  - Pulseless electrical activity [Unknown]
  - Cellulitis [Unknown]

NARRATIVE: CASE EVENT DATE: 20141021
